FAERS Safety Report 4325582-X (Version None)
Quarter: 2004Q1

REPORT INFORMATION
  Report Type: 
  Country: None (occurrence: None)
  Receive Date: 20040324
  Receipt Date: 20040310
  Transmission Date: 20041129
  Serious: Yes (Hospitalization, Other)
  Sender: FDA-Public Use
  Company Number: USA040361601

PATIENT
  Age: 13 Year
  Sex: Female

DRUGS (4)
  1. PROZAC [Suspect]
     Indication: DEPRESSION
     Dosage: 20 MG
     Dates: start: 20031001, end: 20040202
  2. DETROMETHORPHAN [Concomitant]
  3. ZITHROMAX [Concomitant]
  4. ALBUTEROL [Concomitant]

REACTIONS (12)
  - CONVULSION [None]
  - DRUG INTERACTION [None]
  - DYSKINESIA [None]
  - EYE PAIN [None]
  - FEELING HOT [None]
  - GRAND MAL CONVULSION [None]
  - HEADACHE [None]
  - LEGAL PROBLEM [None]
  - MUSCLE TWITCHING [None]
  - NERVOUS SYSTEM DISORDER [None]
  - PNEUMONIA [None]
  - SEROTONIN SYNDROME [None]
